FAERS Safety Report 8208292-8 (Version None)
Quarter: 2012Q1

REPORT INFORMATION
  Report Type: 
  Country: None (occurrence: None)
  Receive Date: 20120314
  Receipt Date: 20120305
  Transmission Date: 20120608
  Serious: Yes (Other)
  Sender: FDA-Public Use
  Company Number: GR-GILEAD-2012-0052050

PATIENT
  Sex: Female

DRUGS (9)
  1. SINTROM [Concomitant]
  2. IRBESARTAN [Suspect]
     Dosage: 300 MG, UNK
     Route: 048
  3. PLAVIX [Concomitant]
  4. GLUCOPHAGE [Concomitant]
  5. NOVOMIX                            /01475801/ [Concomitant]
  6. SALOSPIR [Concomitant]
  7. RANOLAZINE [Suspect]
     Indication: ANGINA PECTORIS
     Dosage: 375 MG, QD
     Route: 048
     Dates: start: 20120203, end: 20120213
  8. LOPRESSOR [Suspect]
     Dosage: 50 MG, UNK
     Route: 048
  9. AMIODARONE HCL [Suspect]
     Dosage: 200 MG, UNK
     Route: 048

REACTIONS (1)
  - TORSADE DE POINTES [None]
